FAERS Safety Report 5572603-2 (Version None)
Quarter: 2007Q4

REPORT INFORMATION
  Report Type: 
  Country: None (occurrence: None)
  Receive Date: 20071130
  Receipt Date: 20070330
  Transmission Date: 20080405
  Serious: Yes (Other)
  Sender: FDA-Public Use
  Company Number: WAES 0510USA09401

PATIENT
  Age: 70 Year
  Sex: Female

DRUGS (2)
  1. FOSAMAX [Suspect]
     Dosage: 10 MG DAILY PO,70 MG/WKY/PO
     Route: 048
     Dates: start: 19990401, end: 20010901
  2. FOSAMAX [Suspect]
     Dosage: 10 MG DAILY PO,70 MG/WKY/PO
     Route: 048
     Dates: start: 20010901, end: 20050701

REACTIONS (1)
  - OSTEONECROSIS [None]
